FAERS Safety Report 19475778 (Version 4)
Quarter: 2024Q3

REPORT INFORMATION
  Report Type: Spontaneous
  Country: JP (occurrence: JP)
  Receive Date: 20210630
  Receipt Date: 20240910
  Transmission Date: 20241016
  Serious: Yes (Hospitalization, Other)
  Sender: PFIZER
  Company Number: JP-PFIZER INC-2021688629

PATIENT
  Age: 20 Year
  Sex: Male

DRUGS (7)
  1. LEVOFLOXACIN [Suspect]
     Active Substance: LEVOFLOXACIN
     Indication: Nasopharyngitis
     Dosage: UNK (SIX MONTHS AGO)
  2. LEVOFLOXACIN [Suspect]
     Active Substance: LEVOFLOXACIN
     Dosage: UNK (THREE MONTHS LATER)
  3. LEVOFLOXACIN [Suspect]
     Active Substance: LEVOFLOXACIN
     Dosage: UNK (TWO WEEKS BEFORE)
  4. LOXOPROFEN [Concomitant]
     Active Substance: LOXOPROFEN
     Indication: Nasopharyngitis
     Dosage: UNK (SIX MONTHS AGO)
  5. LOXOPROFEN [Concomitant]
     Active Substance: LOXOPROFEN
     Dosage: UNK (THREE MONTHS LATER)
  6. LOXOPROFEN [Concomitant]
     Active Substance: LOXOPROFEN
     Dosage: UNK (TWO WEEKS BEFORE)
  7. MEQUITAZINE [Concomitant]
     Active Substance: MEQUITAZINE
     Indication: Nasopharyngitis
     Dosage: UNK (SIX MONTHS AGO)

REACTIONS (7)
  - Anaphylactic reaction [Unknown]
  - Drug eruption [Unknown]
  - Pruritus [Unknown]
  - Urticaria [Unknown]
  - Dyspnoea [Unknown]
  - Nausea [Unknown]
  - Off label use [Unknown]
